FAERS Safety Report 8171349-4 (Version None)
Quarter: 2012Q1

REPORT INFORMATION
  Report Type: 
  Country: None (occurrence: None)
  Receive Date: 20120104
  Receipt Date: 20111206
  Transmission Date: 20120608
  Serious: No
  Sender: FDA-Public Use
  Company Number: 2011HGS-002921

PATIENT
  Age: 31 Year
  Sex: Female

DRUGS (2)
  1. BENLYSTA [Suspect]
  2. BENLYSTA [Suspect]
     Indication: SYSTEMIC LUPUS ERYTHEMATOSUS
     Dosage: 520 MG, 1 IN 28 D, INTRAVENOUS DRIP
     Route: 041
     Dates: start: 20110713

REACTIONS (4)
  - THROAT IRRITATION [None]
  - SENSATION OF PRESSURE [None]
  - TONGUE OEDEMA [None]
  - PRURITUS [None]
